FAERS Safety Report 6494854-5 (Version None)
Quarter: 2009Q4

REPORT INFORMATION
  Report Type: 
  Country: None (occurrence: None)
  Receive Date: 20091214
  Receipt Date: 20091208
  Transmission Date: 20100525
  Serious: Yes (Death, Hospitalization, Other)
  Sender: FDA-Public Use
  Company Number: PHHO2009US15305

PATIENT
  Age: 56 Year
  Sex: Female

DRUGS (14)
  1. SOM230 SOM+INJ [Suspect]
     Indication: METASTATIC CARCINOID TUMOUR
     Dosage: 900 MCG BID S.C.
     Route: 058
     Dates: start: 20090604, end: 20090716
  2. SOM230 SOM+INJ [Suspect]
     Dosage: 60 MG EVERY 4 WEEKS
     Route: 030
     Dates: start: 20090702, end: 20091022
  3. AFINITOR [Suspect]
     Indication: METASTATIC CARCINOID TUMOUR
     Dosage: 10 MG/DAILY
     Route: 048
     Dates: start: 20090604
  4. AFINITOR [Suspect]
     Dosage: 5 MG/DAILY
     Route: 048
     Dates: start: 20090702
  5. OCTREOTIDE ACETATE [Concomitant]
  6. CYCLOBENZAPRINE [Concomitant]
  7. DILAUDID [Concomitant]
  8. GLYBURIDE [Concomitant]
  9. LABETALOL HCL [Concomitant]
  10. LASIX [Concomitant]
  11. LISINOPRIL [Concomitant]
  12. OMEPRAZOLE [Concomitant]
  13. TRAZODONE HCL [Concomitant]
  14. VENTOLIN [Concomitant]

REACTIONS (18)
  - APNOEA [None]
  - CARDIAC ARREST [None]
  - CARDIAC FAILURE [None]
  - CHEST PAIN [None]
  - CONCOMITANT DISEASE PROGRESSION [None]
  - DIARRHOEA [None]
  - DYSPNOEA [None]
  - ELECTROCARDIOGRAM QT PROLONGED [None]
  - FATIGUE [None]
  - FLUSHING [None]
  - HYPERGLYCAEMIA [None]
  - HYPERHIDROSIS [None]
  - HYPERTENSION [None]
  - MALIGNANT NEOPLASM PROGRESSION [None]
  - MYOCARDIAL INFARCTION [None]
  - PALLOR [None]
  - PERIPHERAL COLDNESS [None]
  - VITAL FUNCTIONS ABNORMAL [None]
